FAERS Safety Report 4844066-3 (Version None)
Quarter: 2005Q4

REPORT INFORMATION
  Report Type: 
  Country: None (occurrence: None)
  Receive Date: 20051202
  Receipt Date: 20051014
  Transmission Date: 20060501
  Serious: Yes (Congenital Anomaly)
  Sender: FDA-Public Use
  Company Number: US-ROCHE-421593

PATIENT
  Sex: Male

DRUGS (3)
  1. ACCUTANE [Suspect]
     Dates: start: 19960610, end: 19960702
  2. ACCUTANE [Suspect]
  3. ASACOL [Concomitant]
     Indication: COLITIS

REACTIONS (8)
  - CHORIOAMNIONITIS [None]
  - DRUG EXPOSURE BEFORE PREGNANCY [None]
  - INTRA-UTERINE DEATH [None]
  - PLACENTAL DISORDER [None]
  - PLACENTAL NECROSIS [None]
  - PREGNANCY [None]
  - SMALL FOR DATES BABY [None]
  - VAGINAL HAEMORRHAGE [None]
